FAERS Safety Report 8910128 (Version 2)
Quarter: 2012Q4

REPORT INFORMATION
  Report Type: 
  Country: US (occurrence: US)
  Receive Date: 20121114
  Receipt Date: 20121126
  Transmission Date: 20130627
  Serious: Yes (Hospitalization)
  Sender: FDA-Public Use
  Company Number: US-ACTELION-A-US2012-73618

PATIENT
  Age: 47 Year
  Sex: Male

DRUGS (1)
  1. VELETRI [Suspect]
     Indication: PULMONARY ARTERIAL HYPERTENSION
     Dosage: 14 ng/kg, per min
     Route: 042
     Dates: start: 201201

REACTIONS (3)
  - Device infusion issue [Recovered/Resolved]
  - Thrombosis in device [Recovered/Resolved]
  - Catheter placement [Recovered/Resolved]
